FAERS Safety Report 10078780 (Version 2)
Quarter: 2014Q2

REPORT INFORMATION
  Report Type: Spontaneous
  Country: IT (occurrence: None)
  Receive Date: 20140411
  Receipt Date: 20140605
  Transmission Date: 20141212
  Serious: Yes (Hospitalization)
  Sender: FDA-Public Use
  Company Number: AUR-APL-2014-04368

PATIENT
  Age: 82 Year
  Sex: Female
  Weight: 60 kg

DRUGS (3)
  1. LEVOFLOXACIN (LEVOFLOXACIN) [Suspect]
     Indication: INFECTION
     Dosage: 1 D
     Route: 048
     Dates: start: 20140122, end: 20140130
  2. NEO-LOTAN PLUS (HYZAAR) [Concomitant]
  3. FEMARA (LETROZOLE) [Concomitant]

REACTIONS (3)
  - Dermatitis allergic [None]
  - Hyperpyrexia [None]
  - Rash [None]
